FAERS Safety Report 6762307-2 (Version None)
Quarter: 2010Q2

REPORT INFORMATION
  Report Type: 
  Country: None (occurrence: None)
  Receive Date: 20100609
  Receipt Date: 20030424
  Transmission Date: 20101027
  Serious: Yes (Other)
  Sender: FDA-Public Use
  Company Number: PHHY2003AU02426

PATIENT
  Sex: Male

DRUGS (2)
  1. CLOZARIL [Suspect]
     Indication: SCHIZOPHRENIA
     Dosage: UNK
     Dates: start: 20030227
  2. CLOZARIL [Suspect]
     Dosage: 200 MG NOCTE
     Dates: end: 20030516

REACTIONS (4)
  - BLOOD PRESSURE FLUCTUATION [None]
  - CARDIAC DISORDER [None]
  - LEFT VENTRICULAR HYPERTROPHY [None]
  - LIPIDS INCREASED [None]
